FAERS Safety Report 10273597 (Version 2)
Quarter: 2014Q3

REPORT INFORMATION
  Report Type: Spontaneous
  Country: TN (occurrence: TN)
  Receive Date: 20140702
  Receipt Date: 20140702
  Transmission Date: 20150326
  Serious: Yes (Other)
  Sender: FDA-Public Use
  Company Number: TN-ACTAVIS-2014-13988

PATIENT
  Age: 74 Year

DRUGS (1)
  1. TRIAMCINOLONE ACETONIDE (AMALLC) [Suspect]
     Active Substance: TRIAMCINOLONE ACETONIDE
     Indication: DIABETIC RETINAL OEDEMA
     Dosage: UNKNOWN - INJECTION
     Route: 031

REACTIONS (3)
  - Vitreous detachment [Unknown]
  - Cataract [Unknown]
  - Cytomegalovirus chorioretinitis [Unknown]
